FAERS Safety Report 14416640 (Version 4)
Quarter: 2018Q1

REPORT INFORMATION
  Report Type: Spontaneous
  Country: DE (occurrence: DE)
  Receive Date: 20180122
  Receipt Date: 20180327
  Transmission Date: 20180509
  Serious: Yes (Hospitalization)
  Sender: FDA-Public Use
  Company Number: DE-ROCHE-2056765

PATIENT
  Age: 52 Year
  Sex: Female

DRUGS (6)
  1. PERJETA [Suspect]
     Active Substance: PERTUZUMAB
     Indication: BREAST CANCER METASTATIC
     Dosage: DURATION OF DRUG ADMINISTRATION 53 MINUTES
     Route: 042
     Dates: start: 20171023
  2. HERCEPTIN [Suspect]
     Active Substance: TRASTUZUMAB
     Indication: BREAST CANCER METASTATIC
     Dosage: DURATION OF DRUG ADMINISTRATION 70 MINUTES
     Route: 042
     Dates: start: 20171023
  3. DEXAMETHASON [Concomitant]
     Active Substance: DEXAMETHASONE
     Route: 048
  4. ZOLEDRONIC ACID [Concomitant]
     Active Substance: ZOLEDRONIC ACID
     Indication: BREAST CANCER METASTATIC
     Dosage: DURATION OF DRUG ADMINISTRATION 1 HOUR
     Route: 042
     Dates: start: 20170922, end: 20171023
  5. PACLITAXEL. [Suspect]
     Active Substance: PACLITAXEL
     Indication: BREAST CANCER METASTATIC
     Dosage: DURATION OF DRUG ADMINISTRATION 65 MINUTES
     Route: 042
     Dates: start: 20171020, end: 20171027
  6. HERCEPTIN [Suspect]
     Active Substance: TRASTUZUMAB
     Route: 042
     Dates: start: 20171002

REACTIONS (4)
  - Back injury [Recovering/Resolving]
  - Recall phenomenon [Recovering/Resolving]
  - Laryngitis [Recovering/Resolving]
  - Radiation skin injury [Recovering/Resolving]

NARRATIVE: CASE EVENT DATE: 20171029
